FAERS Safety Report 17792529 (Version 2)
Quarter: 2020Q4

REPORT INFORMATION
  Report Type: Spontaneous
  Country: GB (occurrence: GB)
  Receive Date: 20200515
  Receipt Date: 20201015
  Transmission Date: 20210113
  Serious: Yes (Life-Threatening, Hospitalization)
  Sender: FDA-Public Use
  Company Number: GB-TEVA-2020-GB-1234859

PATIENT
  Age: 81 Year
  Sex: Female
  Weight: 65 kg

DRUGS (1)
  1. ALENDRONIC ACID [Suspect]
     Active Substance: ALENDRONIC ACID
     Indication: OSTEOPOROSIS
     Dosage: 70 MG
     Route: 048
     Dates: start: 20100401, end: 20200426

REACTIONS (8)
  - Oropharyngeal pain [Unknown]
  - Laryngeal oedema [Recovered/Resolved with Sequelae]
  - Product physical issue [Unknown]
  - Dyspnoea [Unknown]
  - Productive cough [Unknown]
  - Wheezing [Unknown]
  - Wrong technique in product usage process [Unknown]
  - Dysphonia [Unknown]

NARRATIVE: CASE EVENT DATE: 20200426
